FAERS Safety Report 6689837-6 (Version None)
Quarter: 2010Q2

REPORT INFORMATION
  Report Type: 
  Country: None (occurrence: None)
  Receive Date: 20100412
  Receipt Date: 20100218
  Transmission Date: 20101027
  Serious: No
  Sender: FDA-Public Use
  Company Number: 1000011922

PATIENT
  Age: 68 Year
  Sex: Female

DRUGS (2)
  1. BYSTOLIC [Suspect]
     Indication: CARDIAC ARREST
     Dosage: 5 MG (5 MG, 1 IN 1 D), ORAL
     Route: 048
     Dates: start: 20100129
  2. FOSAMAX [Concomitant]

REACTIONS (5)
  - CARDIAC FLUTTER [None]
  - DIZZINESS [None]
  - DYSPHONIA [None]
  - DYSPNOEA [None]
  - VERTIGO [None]
